FAERS Safety Report 6698555-X (Version None)
Quarter: 2010Q2

REPORT INFORMATION
  Report Type: 
  Country: None (occurrence: None)
  Receive Date: 20100427
  Receipt Date: 20100419
  Transmission Date: 20101027
  Serious: Yes (Hospitalization)
  Sender: FDA-Public Use
  Company Number: CA-ABBOTT-10P-028-0624924-00

PATIENT
  Sex: Female

DRUGS (4)
  1. HUMIRA [Suspect]
     Indication: PSORIASIS
     Route: 058
     Dates: start: 20091111
  2. LOPROX [Concomitant]
     Indication: PSORIASIS
     Dates: start: 20071109
  3. TIAMOL [Concomitant]
     Indication: PSORIASIS
     Dates: start: 20071109
  4. BETNOVATE [Concomitant]
     Indication: PSORIASIS
     Dates: start: 19980528

REACTIONS (1)
  - CELLULITIS [None]
